FAERS Safety Report 8453635-3 (Version None)
Quarter: 2012Q2

REPORT INFORMATION
  Report Type: 
  Country: None (occurrence: None)
  Receive Date: 20120620
  Receipt Date: 20120614
  Transmission Date: 20120825
  Serious: Yes (Death, Life-Threatening, Hospitalization, Other)
  Sender: FDA-Public Use
  Company Number: DE-MERCK-1206DEU00046

PATIENT
  Age: 63 Year
  Sex: Female

DRUGS (6)
  1. LORAZEPAM [Concomitant]
     Indication: ANXIETY DISORDER
     Route: 048
  2. TIOTROPIUM BROMIDE [Concomitant]
     Indication: CHRONIC OBSTRUCTIVE PULMONARY DISEASE
     Route: 055
  3. JANUVIA [Suspect]
     Indication: DIABETES MELLITUS
     Route: 048
     Dates: start: 20120227
  4. AMLODIPINE BESYLATE AND HYDROCHLOROTHIAZIDE AND VALSARTAN [Concomitant]
     Indication: HYPERTENSION
     Route: 048
     Dates: start: 20110101
  5. TORSEMIDE [Concomitant]
     Indication: OEDEMA
     Route: 048
  6. ANESTHETIC (UNSPECIFIED) [Concomitant]
     Indication: BACK PAIN
     Route: 058

REACTIONS (7)
  - CARDIAC ARREST [None]
  - DUODENITIS [None]
  - HYPOXIC-ISCHAEMIC ENCEPHALOPATHY [None]
  - GASTRIC VARICES [None]
  - GASTROINTESTINAL HAEMORRHAGE [None]
  - CIRCULATORY COLLAPSE [None]
  - GASTRITIS [None]
